FAERS Safety Report 5065138-7 (Version None)
Quarter: 2006Q3

REPORT INFORMATION
  Report Type: 
  Country: None (occurrence: None)
  Receive Date: 20060725
  Receipt Date: 20060707
  Transmission Date: 20061208
  Serious: Yes (Death)
  Sender: FDA-Public Use
  Company Number: IE200605004434

PATIENT
  Sex: Female

DRUGS (1)
  1. YENTREVE [Suspect]

REACTIONS (1)
  - MYOCARDIAL INFARCTION [None]
